FAERS Safety Report 4920457-7 (Version None)
Quarter: 2006Q1

REPORT INFORMATION
  Report Type: 
  Country: None (occurrence: None)
  Receive Date: 20060217
  Receipt Date: 20060207
  Transmission Date: 20060701
  Serious: Yes (Death)
  Sender: FDA-Public Use
  Company Number: 2006S1001184

PATIENT
  Sex: Female

DRUGS (1)
  1. FENTANYL [Suspect]
     Dosage: 75 UG/HR TRANS
     Route: 062

REACTIONS (1)
  - OVERDOSE [None]
